FAERS Safety Report 12452591 (Version 2)
Quarter: 2016Q2

REPORT INFORMATION
  Report Type: Spontaneous
  Country: JP (occurrence: JP)
  Receive Date: 20160609
  Receipt Date: 20160623
  Transmission Date: 20160815
  Serious: Yes (Other)
  Sender: FDA-Public Use
  Company Number: JP-SA-2016SA106925

PATIENT
  Age: 55 Year
  Sex: Male

DRUGS (2)
  1. ASPIRIN. [Concomitant]
     Active Substance: ASPIRIN
     Route: 048
  2. PLAVIX [Suspect]
     Active Substance: CLOPIDOGREL BISULFATE
     Indication: MYOCARDIAL INFARCTION
     Route: 048
     Dates: start: 2016

REACTIONS (3)
  - Muscle rupture [Unknown]
  - Pain [Unknown]
  - Skin discolouration [Unknown]

NARRATIVE: CASE EVENT DATE: 201604
